FAERS Safety Report 9292391 (Version 1)
Quarter: 2013Q2

REPORT INFORMATION
  Report Type: Report from Study
  Country: BD (occurrence: BD)
  Receive Date: 20130516
  Receipt Date: 20130516
  Transmission Date: 20140414
  Serious: Yes (Death, Other)
  Sender: FDA-Public Use
  Company Number: PHHY2013BD015441

PATIENT
  Age: 66 Year
  Sex: Male

DRUGS (1)
  1. SEBIVO [Suspect]
     Indication: HEPATITIS B
     Dosage: DAILY
     Route: 048
     Dates: start: 20080501

REACTIONS (2)
  - Hepatic cirrhosis [Fatal]
  - Haematemesis [Unknown]
